FAERS Safety Report 5455355-6 (Version None)
Quarter: 2007Q3

REPORT INFORMATION
  Report Type: 
  Country: None (occurrence: None)
  Receive Date: 20070918
  Receipt Date: 20070917
  Transmission Date: 20080115
  Serious: Yes (Hospitalization)
  Sender: FDA-Public Use
  Company Number: BE-BRISTOL-MYERS SQUIBB COMPANY-13865159

PATIENT
  Age: 61 Year
  Sex: Male

DRUGS (15)
  1. CARBOPLATIN [Suspect]
     Indication: SMALL CELL LUNG CANCER STAGE UNSPECIFIED
     Route: 042
     Dates: start: 20070712, end: 20070712
  2. ALIMTA [Suspect]
     Indication: SMALL CELL LUNG CANCER STAGE UNSPECIFIED
     Route: 042
     Dates: start: 20070712
  3. FOLAVIT [Concomitant]
     Route: 048
     Dates: start: 20070502
  4. VITAMIN B-12 [Concomitant]
     Route: 030
     Dates: start: 20070502
  5. MEDROL [Concomitant]
     Route: 048
     Dates: start: 20070601
  6. LORAMET [Concomitant]
     Route: 048
     Dates: start: 20060101
  7. BISOPROLOL [Concomitant]
     Route: 048
     Dates: start: 20040501
  8. COVERSYL PLUS [Concomitant]
     Route: 048
     Dates: start: 20040501
  9. OMEPRAZOLE [Concomitant]
     Dates: start: 20070501
  10. AMLOR [Concomitant]
     Route: 048
     Dates: start: 20040501
  11. SERETIDE [Concomitant]
     Dosage: 1 PUFF
     Dates: start: 20070401
  12. SPIRIVA [Concomitant]
     Dates: start: 20070401
  13. HYDROMORPHONE HCL [Concomitant]
     Dates: start: 20070501
  14. PLAVIX [Concomitant]
     Dates: start: 20040101
  15. DEXAMETHASONE 0.5MG TAB [Concomitant]
     Dates: start: 20070309, end: 20070713

REACTIONS (1)
  - COLITIS [None]
